FAERS Safety Report 25451379 (Version 3)
Quarter: 2025Q3

REPORT INFORMATION
  Report Type: Report from Study
  Country: GB (occurrence: GB)
  Receive Date: 20250618
  Receipt Date: 20250911
  Transmission Date: 20251021
  Serious: Yes (Hospitalization)
  Sender: TAKEDA
  Company Number: GB-TAKEDA-2025TUS055842

PATIENT
  Age: 54 Year
  Sex: Male
  Weight: 100 kg

DRUGS (6)
  1. PARATHYROID HORMONE [Suspect]
     Active Substance: PARATHYROID HORMONE
     Indication: Hypoparathyroidism
     Dosage: 50 MICROGRAM, QD
     Dates: start: 20210203
  2. PARATHYROID HORMONE [Suspect]
     Active Substance: PARATHYROID HORMONE
  3. PARATHYROID HORMONE [Suspect]
     Active Substance: PARATHYROID HORMONE
  4. ALLOPURINOL [Concomitant]
     Active Substance: ALLOPURINOL
     Indication: Gout
  5. RAMIPRIL [Concomitant]
     Active Substance: RAMIPRIL
     Indication: Hypertension
  6. ALFACALCIDOL [Concomitant]
     Active Substance: ALFACALCIDOL
     Dosage: 2.5 MICROGRAM, TID
     Dates: start: 20091202

REACTIONS (2)
  - Vasculitis [Recovered/Resolved]
  - Urinary tract infection [Recovered/Resolved]

NARRATIVE: CASE EVENT DATE: 20241201
